FAERS Safety Report 6938953-X (Version None)
Quarter: 2010Q3

REPORT INFORMATION
  Report Type: 
  Country: None (occurrence: None)
  Receive Date: 20100824
  Receipt Date: 20100813
  Transmission Date: 20110219
  Serious: Yes (Hospitalization)
  Sender: FDA-Public Use
  Company Number: US-JNJFOC-20100804966

PATIENT
  Sex: Male
  Weight: 52.16 kg

DRUGS (4)
  1. REMICADE [Suspect]
     Indication: RHEUMATOID ARTHRITIS
     Route: 042
  2. PREDNISONE [Concomitant]
     Indication: RHEUMATOID ARTHRITIS
  3. IRON [Concomitant]
     Indication: NUTRITIONAL SUPPORT
  4. VITAMIN B-12 [Concomitant]
     Indication: NUTRITIONAL SUPPORT

REACTIONS (8)
  - ARTHROPATHY [None]
  - BLOOD IRON DECREASED [None]
  - BLOOD POTASSIUM DECREASED [None]
  - BURSA DISORDER [None]
  - FEELING ABNORMAL [None]
  - HYPERCALCAEMIA [None]
  - PAIN [None]
  - WEIGHT DECREASED [None]
